FAERS Safety Report 23523079 (Version 1)
Quarter: 2024Q1

REPORT INFORMATION
  Report Type: Spontaneous
  Country: US (occurrence: US)
  Receive Date: 20240214
  Receipt Date: 20240214
  Transmission Date: 20240410
  Serious: No
  Sender: FDA-Public Use
  Company Number: US-BAYER-2024A023921

PATIENT
  Age: 34 Year
  Sex: Female

DRUGS (1)
  1. KYLEENA [Suspect]
     Active Substance: LEVONORGESTREL
     Indication: Contraceptive implant
     Dosage: 17.5?G/DAY
     Route: 015
     Dates: start: 202206

REACTIONS (2)
  - Abdominal pain lower [None]
  - Genital haemorrhage [None]
